FAERS Safety Report 8008857-2 (Version None)
Quarter: 2011Q4

REPORT INFORMATION
  Report Type: 
  Country: None (occurrence: None)
  Receive Date: 20111227
  Receipt Date: 20111220
  Transmission Date: 20120403
  Serious: Yes (Other)
  Sender: FDA-Public Use
  Company Number: PHHY2011DK110702

PATIENT
  Sex: Female

DRUGS (1)
  1. ALENDRONATE SODIUM [Suspect]
     Indication: OSTEOPOROSIS
     Dosage: 70 MG, QW
     Route: 048
     Dates: start: 20040101

REACTIONS (5)
  - OEDEMA MOUTH [None]
  - OSTEOMYELITIS [None]
  - PERIOSTITIS [None]
  - OSTEONECROSIS [None]
  - ORAL MUCOSAL ERYTHEMA [None]
